FAERS Safety Report 10974950 (Version 1)
Quarter: 2015Q2

REPORT INFORMATION
  Report Type: Report from Study
  Country: GB (occurrence: GB)
  Receive Date: 20150401
  Receipt Date: 20150401
  Transmission Date: 20150821
  Serious: Yes (Hospitalization)
  Sender: FDA-Public Use
  Company Number: GB-IPSEN BIOPHARMACEUTICALS, INC.-2011-1808

PATIENT
  Age: 16 Year
  Sex: Male
  Weight: 36.8 kg

DRUGS (4)
  1. THYROID HORMONE [Concomitant]
     Indication: HYPOTHYROIDISM
     Route: 048
  2. INCRELEX [Suspect]
     Active Substance: MECASERMIN
     Indication: FAILURE TO THRIVE
     Route: 058
     Dates: start: 20101110, end: 20110519
  3. MEDICATION FOR DIABETES [Concomitant]
     Indication: TYPE 1 DIABETES MELLITUS
     Dosage: BASAL BOLUS
     Route: 058
  4. ANTIBIOTICS [Concomitant]
     Active Substance: UNSPECIFIED INGREDIENT
     Indication: BRONCHIECTASIS
     Route: 048

REACTIONS (4)
  - Hypersplenism [Recovered/Resolved]
  - Splenomegaly [Recovered/Resolved]
  - Condition aggravated [Recovered/Resolved]
  - Splenic infarction [Recovered/Resolved]

NARRATIVE: CASE EVENT DATE: 20110518
